FAERS Safety Report 12484604 (Version 1)
Quarter: 2016Q2

REPORT INFORMATION
  Report Type: Spontaneous
  Country: US (occurrence: US)
  Receive Date: 20160621
  Receipt Date: 20160621
  Transmission Date: 20160815
  Serious: Yes (Other)
  Sender: FDA-Public Use
  Company Number: US-PFIZER INC-2016297505

PATIENT
  Age: 70 Year
  Sex: Male

DRUGS (1)
  1. CALCIUM CHLORIDE. [Suspect]
     Active Substance: CALCIUM CHLORIDE
     Indication: HYPOCALCAEMIA
     Dosage: 1 G, UNK
     Route: 042

REACTIONS (4)
  - Skin necrosis [Recovering/Resolving]
  - Extravasation [Recovering/Resolving]
  - Skin ulcer [Recovering/Resolving]
  - Skin lesion [Recovering/Resolving]
